FAERS Safety Report 7288282-2 (Version None)
Quarter: 2011Q1

REPORT INFORMATION
  Report Type: 
  Country: None (occurrence: None)
  Receive Date: 20110211
  Receipt Date: 20110203
  Transmission Date: 20110831
  Serious: Yes (Death, Hospitalization)
  Sender: FDA-Public Use
  Company Number: US-SOLVAY-00210005087

PATIENT
  Age: 29975 Day
  Sex: Male
  Weight: 63 kg

DRUGS (11)
  1. ANDROGEL [Suspect]
     Indication: BLOOD TESTOSTERONE DECREASED
     Dosage: DAILY DOSE: 7.5 GRAM(S)
     Route: 062
     Dates: start: 20080128, end: 20080228
  2. RENVELA [Concomitant]
     Indication: RENAL DISORDER
     Dosage: DAILY DOSE: 2400 MILLIGRAM(S)
     Route: 048
     Dates: start: 20100518
  3. PERCOCET [Concomitant]
     Indication: PAIN
     Dosage: DAILY DOSE:  UNKNOWN; AS USED: 5 MG-325 MG; FREQUENCY: AS NEEDED
     Route: 048
     Dates: start: 20100601
  4. ASPIRIN [Concomitant]
     Indication: PROPHYLAXIS
     Dosage: DAILY DOSE: 325 MILLIGRAM(S)
     Route: 048
     Dates: start: 19900101
  5. ANDROGEL [Suspect]
     Dosage: DAILY DOSE: 10 GRAM(S)
     Route: 062
     Dates: start: 20080229, end: 20100108
  6. FUROSEMIDE [Concomitant]
     Indication: HYPERTENSION
     Dosage: DAILY DOSE: 120 MILLIGRAM(S)
     Route: 048
     Dates: start: 20100101
  7. CIALIS [Concomitant]
     Indication: ERECTILE DYSFUNCTION
     Dosage: DAILY DOSE: 20 MILLIGRAM(S); AS USED: 20 MG; FREQUENCY: AS NEEDED
     Route: 048
     Dates: start: 20050101
  8. CRESTOR [Concomitant]
     Indication: HYPERCHOLESTEROLAEMIA
     Dosage: DAILY DOSE: 40 MILLIGRAM(S)
     Route: 048
     Dates: start: 20100601
  9. CALCITRIOL [Concomitant]
     Indication: PROPHYLAXIS
     Dosage: DAILY DOSE: .25 MICROGRAM(S)
     Route: 048
     Dates: start: 20100101
  10. AMLODIPINE [Concomitant]
     Indication: HYPERTENSION
     Dosage: DAILY DOSE: 5 MILLIGRAM(S)
     Route: 048
     Dates: start: 20100101
  11. METOPROLOL [Concomitant]
     Indication: HYPERTENSION
     Dosage: DAILY DOSE: 100 MILLIGRAM(S)
     Route: 048
     Dates: start: 20100101

REACTIONS (6)
  - PNEUMONIA ASPIRATION [None]
  - ACUTE MYOCARDIAL INFARCTION [None]
  - CEREBROVASCULAR ACCIDENT [None]
  - DEATH [None]
  - RENAL FAILURE CHRONIC [None]
  - GANGRENE [None]
